FAERS Safety Report 6060079-0 (Version None)
Quarter: 2009Q1

REPORT INFORMATION
  Report Type: 
  Country: None (occurrence: None)
  Receive Date: 20090130
  Receipt Date: 20090120
  Transmission Date: 20090719
  Serious: Yes (Other)
  Sender: FDA-Public Use
  Company Number: US-ELI_LILLY_AND_COMPANY-US200901003310

PATIENT
  Age: 57 Year
  Sex: Male

DRUGS (5)
  1. CYMBALTA [Suspect]
     Indication: DEPRESSION
     Dosage: 60 MG, UNK
     Route: 048
     Dates: start: 20070101
  2. EFFEXOR [Concomitant]
  3. LOPRESSOR HCT [Concomitant]
  4. LORAZEPAM [Concomitant]
  5. METOPROLOL [Concomitant]

REACTIONS (2)
  - BLOOD IRON INCREASED [None]
  - LOSS OF LIBIDO [None]
